FAERS Safety Report 8595063-6 (Version None)
Quarter: 2012Q3

REPORT INFORMATION
  Report Type: 
  Country: None (occurrence: None)
  Receive Date: 20120815
  Receipt Date: 20120809
  Transmission Date: 20120928
  Serious: Yes (Other)
  Sender: FDA-Public Use
  Company Number: BR-PFIZER INC-2012195362

PATIENT
  Age: 51 Year
  Sex: Male

DRUGS (5)
  1. SUTENT [Suspect]
     Indication: RENAL CANCER
     Dosage: 50 MG, 1X/DAY
     Route: 048
     Dates: start: 20120618
  2. MAREVAN ^NYCOMED^ [Concomitant]
     Dosage: HALF TABLET FOR 1 DAY, AND 1 TABLET IN THE OTHER DAYS
  3. OMEPRAZOLE [Concomitant]
     Dosage: 20 MG, 1X/DAY
  4. DECADRON PHOSPHATE [Concomitant]
     Dosage: 4 MG, 1X/DAY
  5. PHENYTOIN [Concomitant]
     Dosage: 100 MG, 3X/DAY (3 DF DAILY)

REACTIONS (3)
  - DRY SKIN [None]
  - ORAL CANDIDIASIS [None]
  - ACNE [None]
